FAERS Safety Report 5713273-X (Version None)
Quarter: 2008Q2

REPORT INFORMATION
  Report Type: 
  Country: None (occurrence: None)
  Receive Date: 20080418
  Receipt Date: 20080404
  Transmission Date: 20081010
  Serious: Yes (Other)
  Sender: FDA-Public Use
  Company Number: 2008S1004371

PATIENT
  Sex: Female

DRUGS (3)
  1. SALBUTAMOL (SALBUTAMOL) [Suspect]
     Indication: PREMATURE LABOUR
     Dosage: 5 MCG;INTRAVENOUS
     Route: 042
  2. SODIUM CHLORIDE [Concomitant]
  3. DEXTROSE [Concomitant]

REACTIONS (3)
  - CHEST PAIN [None]
  - DRUG EXPOSURE DURING PREGNANCY [None]
  - MYOCARDIAL ISCHAEMIA [None]
